FAERS Safety Report 12140174 (Version 3)
Quarter: 2016Q3

REPORT INFORMATION
  Report Type: Spontaneous
  Country: GB (occurrence: GB)
  Receive Date: 20160303
  Receipt Date: 20160715
  Transmission Date: 20161109
  Serious: Yes (Death, Other)
  Sender: FDA-Public Use
  Company Number: PHFR2016GB002012

PATIENT
  Age: 47 Year
  Sex: Female

DRUGS (1)
  1. GILENYA [Suspect]
     Active Substance: FINGOLIMOD HYDROCHLORIDE
     Indication: MULTIPLE SCLEROSIS
     Dosage: 0.5 MG, QD
     Route: 065
     Dates: start: 201410, end: 201602

REACTIONS (11)
  - Gastrointestinal carcinoma [Fatal]
  - Weight decreased [Fatal]
  - Pain in extremity [Fatal]
  - Hepatobiliary cancer [Fatal]
  - Diarrhoea [Fatal]
  - Bone cancer [Fatal]
  - Musculoskeletal pain [Fatal]
  - Malignant neoplasm of unknown primary site [Fatal]
  - Lung neoplasm malignant [Fatal]
  - Abdominal pain [Fatal]
  - Spinal pain [Fatal]

NARRATIVE: CASE EVENT DATE: 201512
